FAERS Safety Report 4738509-3 (Version None)
Quarter: 2005Q3

REPORT INFORMATION
  Report Type: 
  Country: None (occurrence: None)
  Receive Date: 20050803
  Receipt Date: 20050707
  Transmission Date: 20060218
  Serious: Yes (Other)
  Sender: FDA-Public Use
  Company Number: GBS050617688

PATIENT
  Age: 13 Year
  Sex: Male
  Weight: 93 kg

DRUGS (1)
  1. STRATTERA [Suspect]
     Indication: ATTENTION DEFICIT/HYPERACTIVITY DISORDER
     Dosage: 40 MG DAY
     Dates: start: 20050501

REACTIONS (6)
  - ANOREXIA [None]
  - CRYING [None]
  - DIZZINESS [None]
  - HEADACHE [None]
  - NAUSEA [None]
  - SOCIAL AVOIDANT BEHAVIOUR [None]
